FAERS Safety Report 7699458-4 (Version None)
Quarter: 2011Q3

REPORT INFORMATION
  Report Type: 
  Country: None (occurrence: None)
  Receive Date: 20110820
  Receipt Date: 20101222
  Transmission Date: 20111222
  Serious: No
  Sender: FDA-Public Use
  Company Number: US-ALLERGAN-1016675US

PATIENT
  Age: 83 Year
  Sex: Male

DRUGS (2)
  1. SANCTURA XR [Suspect]
     Indication: POLLAKIURIA
     Dosage: 60 MG, SINGLE
     Route: 048
     Dates: start: 20101101, end: 20101220
  2. SANCTURA XR [Suspect]

REACTIONS (3)
  - PALPITATIONS [None]
  - HEART RATE INCREASED [None]
  - VISION BLURRED [None]
